FAERS Safety Report 6149491-9 (Version None)
Quarter: 2009Q2

REPORT INFORMATION
  Report Type: 
  Country: None (occurrence: None)
  Receive Date: 20090409
  Receipt Date: 20090331
  Transmission Date: 20091009
  Serious: Yes (Hospitalization)
  Sender: FDA-Public Use
  Company Number: US-CELGENEUS-163-20785-09010939

PATIENT
  Sex: Male

DRUGS (3)
  1. THALOMID [Suspect]
     Indication: MULTIPLE MYELOMA
     Route: 048
     Dates: start: 20090106
  2. THALOMID [Suspect]
     Dosage: 50MG-100MG
     Route: 048
     Dates: start: 20061205, end: 20071001
  3. THALOMID [Suspect]
     Route: 048
     Dates: start: 20080516, end: 20080601

REACTIONS (6)
  - BLOOD VISCOSITY INCREASED [None]
  - CHEST PAIN [None]
  - DISEASE PROGRESSION [None]
  - HEADACHE [None]
  - NO THERAPEUTIC RESPONSE [None]
  - PROTEIN TOTAL INCREASED [None]
